FAERS Safety Report 22608895 (Version 2)
Quarter: 2023Q2

REPORT INFORMATION
  Report Type: Report from Study
  Country: NL (occurrence: NL)
  Receive Date: 20230616
  Receipt Date: 20230620
  Transmission Date: 20230722
  Serious: Yes (Other)
  Sender: FDA-Public Use
  Company Number: NL-ABBVIE-4706544

PATIENT
  Sex: Female

DRUGS (6)
  1. CARBIDOPA\LEVODOPA [Suspect]
     Active Substance: CARBIDOPA\LEVODOPA
     Indication: Parkinson^s disease
     Dosage: MD 11.7ML; CD 1.8ML/H; ED 1.0 ML, REMAINS AT 16 HOURS
     Route: 050
     Dates: start: 20230214
  2. CARBIDOPA\LEVODOPA [Suspect]
     Active Substance: CARBIDOPA\LEVODOPA
     Dosage: MD 11.7ML; CD 2.4ML/H; ED 2.0 ML, REMAINS AT 16 HOURS
     Route: 050
  3. CARBIDOPA\LEVODOPA [Suspect]
     Active Substance: CARBIDOPA\LEVODOPA
     Dosage: MD 11.7ML; CD 2.1ML/H; ED 2.0 ML, REMAINS AT 16 HOURS
     Route: 050
  4. CARBIDOPA\LEVODOPA [Suspect]
     Active Substance: CARBIDOPA\LEVODOPA
     Dosage: MD 11.7ML; CD 2.8 ML/H; ED 2.0 ML, REMAINS AT 16 HOURS
     Route: 050
  5. CARBIDOPA\LEVODOPA [Suspect]
     Active Substance: CARBIDOPA\LEVODOPA
     Dosage: MD 11.7ML; CD 2.6ML/H; ED 2.0 ML, REMAINS AT 16 HOURS
     Route: 050
  6. POLYETHYLENE GLYCOLS [Concomitant]
     Active Substance: POLYETHYLENE GLYCOLS
     Indication: Product used for unknown indication
     Route: 065

REACTIONS (33)
  - Shock [Not Recovered/Not Resolved]
  - Slow speech [Not Recovered/Not Resolved]
  - Stress [Not Recovered/Not Resolved]
  - Medical device site dryness [Not Recovered/Not Resolved]
  - Device dislocation [Recovered/Resolved]
  - Muscular weakness [Not Recovered/Not Resolved]
  - Tremor [Not Recovered/Not Resolved]
  - Fatigue [Not Recovered/Not Resolved]
  - Memory impairment [Not Recovered/Not Resolved]
  - Dystonia [Not Recovered/Not Resolved]
  - Therapeutic product effect delayed [Not Recovered/Not Resolved]
  - Discomfort [Not Recovered/Not Resolved]
  - Disturbance in attention [Not Recovered/Not Resolved]
  - On and off phenomenon [Not Recovered/Not Resolved]
  - Muscle rigidity [Not Recovered/Not Resolved]
  - Medical device site scab [Not Recovered/Not Resolved]
  - Muscle spasms [Not Recovered/Not Resolved]
  - Depressed mood [Not Recovered/Not Resolved]
  - Pain [Not Recovered/Not Resolved]
  - Gastric pH decreased [Recovering/Resolving]
  - Reduced facial expression [Not Recovered/Not Resolved]
  - Family stress [Not Recovered/Not Resolved]
  - Anxiety [Not Recovered/Not Resolved]
  - Wrong technique in device usage process [Not Recovered/Not Resolved]
  - Musculoskeletal chest pain [Not Recovered/Not Resolved]
  - Incorrect route of product administration [Recovered/Resolved]
  - Poor quality sleep [Recovering/Resolving]
  - Scab [Not Recovered/Not Resolved]
  - Judgement impaired [Not Recovered/Not Resolved]
  - Visual impairment [Unknown]
  - Balance disorder [Unknown]
  - Cataract [Not Recovered/Not Resolved]
  - Erythema [Recovering/Resolving]

NARRATIVE: CASE EVENT DATE: 20230614
